FAERS Safety Report 19441373 (Version 1)
Quarter: 2021Q2

REPORT INFORMATION
  Report Type: Spontaneous
  Country: US (occurrence: US)
  Receive Date: 20210618
  Receipt Date: 20210618
  Transmission Date: 20210717
  Serious: No
  Sender: FDA-Public Use
  Company Number: None

PATIENT
  Age: 69 Year
  Sex: Female

DRUGS (6)
  1. LEVOLHYROXIN [Concomitant]
  2. FLUFICASONE [Concomitant]
  3. BUPROPN HCL [Concomitant]
     Active Substance: BUPROPION HYDROCHLORIDE
  4. AZELASTINE. [Concomitant]
     Active Substance: AZELASTINE HYDROCHLORIDE
  5. DULOXETINE. [Concomitant]
     Active Substance: DULOXETINE
  6. PROLIA [Suspect]
     Active Substance: DENOSUMAB
     Indication: HYPOTHYROIDISM
     Dosage: EVERY 6 MONTHS
     Route: 058
     Dates: start: 20181003

REACTIONS (1)
  - Wrist fracture [None]

NARRATIVE: CASE EVENT DATE: 20210604
